FAERS Safety Report 25225624 (Version 2)
Quarter: 2025Q2

REPORT INFORMATION
  Report Type: Spontaneous
  Country: DE (occurrence: DE)
  Receive Date: 20250422
  Receipt Date: 20250502
  Transmission Date: 20250717
  Serious: Yes (Disabling, Other)
  Sender: PFIZER
  Company Number: None

PATIENT
  Age: 71 Year
  Sex: Female
  Weight: 52 kg

DRUGS (6)
  1. EXEMESTANE [Suspect]
     Active Substance: EXEMESTANE
     Indication: Breast cancer female
     Dosage: 1 DF, 1X/DAY (IN THE EVENING)
     Dates: start: 20210130
  2. LETROZOLE [Suspect]
     Active Substance: LETROZOLE
     Indication: Breast cancer female
     Dosage: 1 DF, 1X/DAY
     Dates: start: 20200721
  3. ROSUVASTATIN [Concomitant]
     Active Substance: ROSUVASTATIN
     Dosage: 10 MG, 1X/DAY (0-0-1)
  4. ELIQUIS [Concomitant]
     Active Substance: APIXABAN
     Dosage: 5 MG, 1X/DAY (1-0-0)
  5. CHOLECALCIFEROL [Concomitant]
     Active Substance: CHOLECALCIFEROL
     Dosage: VIGANTOL 500, 0-1-0
  6. NEBIVOLOL [Concomitant]
     Active Substance: NEBIVOLOL
     Dosage: 0.25 DF, 1X/DAY (1/4-0-0)

REACTIONS (4)
  - Normal tension glaucoma [Recovered/Resolved with Sequelae]
  - Optic atrophy [Unknown]
  - Diplopia [Unknown]
  - Photophobia [Unknown]

NARRATIVE: CASE EVENT DATE: 20210705
